FAERS Safety Report 5118286-7 (Version None)
Quarter: 2006Q4

REPORT INFORMATION
  Report Type: 
  Country: None (occurrence: None)
  Receive Date: 20061002
  Receipt Date: 20060817
  Transmission Date: 20070319
  Serious: No
  Sender: FDA-Public Use
  Company Number: US-BRISTOL-MYERS SQUIBB COMPANY-13478847

PATIENT
  Sex: Male
  Weight: 93 kg

DRUGS (10)
  1. ORENCIA [Suspect]
     Indication: RHEUMATOID ARTHRITIS
     Dates: start: 20060801
  2. METOPROLOL TARTRATE [Concomitant]
  3. LOTENSIN [Concomitant]
  4. AMLODIPINE BESYLATE [Concomitant]
  5. METFORMIN HCL [Concomitant]
  6. GLUCOTROL [Concomitant]
  7. ATORVASTATIN CALCIUM [Concomitant]
  8. FINASTERIDE [Concomitant]
  9. HYDROCHLOROTHIAZIDE [Concomitant]
  10. PANCRELIPASE [Concomitant]

REACTIONS (1)
  - BLOOD GLUCOSE INCREASED [None]
